FAERS Safety Report 25663563 (Version 1)
Quarter: 2025Q3

REPORT INFORMATION
  Report Type: Spontaneous
  Country: JP (occurrence: JP)
  Receive Date: 20250811
  Receipt Date: 20250811
  Transmission Date: 20251021
  Serious: Yes (Other)
  Sender: EXELIXIS
  Company Number: JP-TAKEDA-2025TJP007990

PATIENT
  Age: 8 Decade
  Sex: Female

DRUGS (3)
  1. CABOMETYX [Suspect]
     Active Substance: CABOZANTINIB S-MALATE
     Indication: Renal cell carcinoma
     Dosage: 20 MILLIGRAM, QD
     Route: 048
     Dates: start: 202412, end: 202506
  2. CABOMETYX [Suspect]
     Active Substance: CABOZANTINIB S-MALATE
     Route: 048
     Dates: start: 202507
  3. NIVOLUMAB [Suspect]
     Active Substance: NIVOLUMAB
     Indication: Renal cell carcinoma
     Route: 065
     Dates: start: 202412

REACTIONS (2)
  - Cerebral infarction [Recovered/Resolved]
  - Thrombophlebitis migrans [Unknown]

NARRATIVE: CASE EVENT DATE: 20250601
